FAERS Safety Report 4997416-1 (Version None)
Quarter: 2006Q2

REPORT INFORMATION
  Report Type: 
  Country: None (occurrence: None)
  Receive Date: 20060509
  Receipt Date: 20050706
  Transmission Date: 20061013
  Serious: Yes (Hospitalization, Other)
  Sender: FDA-Public Use
  Company Number: US-MERCK-0507USA00925

PATIENT
  Age: 65 Year
  Sex: Male
  Weight: 118 kg

DRUGS (8)
  1. VIOXX [Suspect]
     Indication: ARTHRITIS
     Route: 048
     Dates: end: 20030701
  2. ATENOLOL [Concomitant]
     Route: 065
  3. GLIPIZIDE [Concomitant]
     Route: 065
  4. ZOCOR [Concomitant]
     Route: 048
  5. ACIPHEX [Concomitant]
     Route: 065
  6. WARFARIN [Concomitant]
     Route: 065
  7. FUROSEMIDE [Concomitant]
     Route: 065
  8. [THERAPY UNSPECIFIED] [Concomitant]
     Route: 065

REACTIONS (21)
  - ATRIAL FIBRILLATION [None]
  - CARDIAC DISORDER [None]
  - CAROTID ARTERY OCCLUSION [None]
  - CEREBROVASCULAR ACCIDENT [None]
  - CHEST PAIN [None]
  - CORONARY ARTERY DISEASE [None]
  - EYE DISORDER [None]
  - EYE INJURY [None]
  - GASTROOESOPHAGEAL REFLUX DISEASE [None]
  - GENERAL SYMPTOM [None]
  - LIMB INJURY [None]
  - MYOCARDIAL INFARCTION [None]
  - NASAL DISORDER [None]
  - NEPHROLITHIASIS [None]
  - PNEUMONIA [None]
  - PULMONARY CONGESTION [None]
  - PULMONARY HAEMORRHAGE [None]
  - SLEEP DISORDER [None]
  - STENT PLACEMENT [None]
  - THROMBOSIS [None]
  - VASCULAR BYPASS GRAFT [None]
